FAERS Safety Report 10777211 (Version 2)
Quarter: 2015Q1

REPORT INFORMATION
  Report Type: Report from Study
  Country: BF (occurrence: BF)
  Receive Date: 20150209
  Receipt Date: 20150213
  Transmission Date: 20150721
  Serious: Yes (Life-Threatening, Hospitalization, Other)
  Sender: FDA-Public Use
  Company Number: PHHO2015BF001978

PATIENT
  Age: 19 Year
  Sex: Female
  Weight: 57 kg

DRUGS (4)
  1. CGP 56697 [Suspect]
     Active Substance: ARTEMETHER\LUMEFANTRINE
     Indication: MALARIA
     Dosage: 1 DF,160/960 MG
     Route: 048
     Dates: start: 20150119, end: 20150121
  2. PYRIMETHAMINE W/SULFADOXINE [Concomitant]
     Indication: MALARIA
     Dosage: 1 DF, 1500/75 MG
     Route: 048
     Dates: start: 20141223, end: 20141223
  3. AMOXICILLIN. [Concomitant]
     Active Substance: AMOXICILLIN
     Indication: PROPHYLAXIS
     Dosage: 2000 G, UNK
     Route: 065
     Dates: start: 20150112, end: 20150117
  4. FERROUS SULFATE [Concomitant]
     Active Substance: FERROUS SULFATE\FERROUS SULFATE, DRIED
     Indication: ANAEMIA PROPHYLAXIS
     Dosage: 200 MG, UNK
     Route: 065
     Dates: start: 20141223

REACTIONS (4)
  - Premature delivery [Unknown]
  - Epistaxis [Recovered/Resolved]
  - Shock haemorrhagic [Recovered/Resolved]
  - Anaemia [Recovered/Resolved]

NARRATIVE: CASE EVENT DATE: 20150120
